FAERS Safety Report 5066563-0 (Version None)
Quarter: 2006Q3

REPORT INFORMATION
  Report Type: 
  Country: None (occurrence: None)
  Receive Date: 20060801
  Receipt Date: 20060721
  Transmission Date: 20061208
  Serious: Yes (Hospitalization)
  Sender: FDA-Public Use
  Company Number: NL-ABBOTT-06P-114-0338624-00

PATIENT

DRUGS (4)
  1. DEPAKINE CHRONOSPHERE [Suspect]
     Indication: DRUG USE FOR UNKNOWN INDICATION
     Route: 048
     Dates: start: 20060501
  2. DEPAKINE CHRONOSPHERE [Suspect]
  3. DEPAKINE LIQUID [Suspect]
     Indication: DRUG USE FOR UNKNOWN INDICATION
     Dates: end: 20060501
  4. LEVETIRACETAM [Concomitant]
     Indication: EPILEPSY
     Route: 048

REACTIONS (3)
  - DRUG INEFFECTIVE [None]
  - DRUG LEVEL DECREASED [None]
  - STATUS EPILEPTICUS [None]
